FAERS Safety Report 11866093 (Version 1)
Quarter: 2015Q4

REPORT INFORMATION
  Report Type: Spontaneous
  Country: FR (occurrence: FR)
  Receive Date: 20151223
  Receipt Date: 20151223
  Transmission Date: 20160305
  Serious: Yes (Disabling)
  Sender: FDA-Public Use
  Company Number: FR-GILEAD-2015-0184324

PATIENT
  Age: 82 Year
  Sex: Female
  Weight: 60 kg

DRUGS (2)
  1. HARVONI [Suspect]
     Active Substance: LEDIPASVIR\SOFOSBUVIR
     Indication: HEPATITIS C
     Dosage: 1 DF, QD
     Route: 048
     Dates: start: 20150903, end: 20151125
  2. REBETOL [Concomitant]
     Active Substance: RIBAVIRIN
     Indication: PRODUCT USED FOR UNKNOWN INDICATION
     Dosage: 5 DF, QD
     Dates: start: 20150903, end: 20151125

REACTIONS (2)
  - Insomnia [Unknown]
  - Psychomotor hyperactivity [Unknown]

NARRATIVE: CASE EVENT DATE: 20150903
